FAERS Safety Report 13125078 (Version 1)
Quarter: 2017Q1

REPORT INFORMATION
  Report Type: Spontaneous
  Country: BR (occurrence: BR)
  Receive Date: 20170118
  Receipt Date: 20170118
  Transmission Date: 20170428
  Serious: Yes (Hospitalization)
  Sender: FDA-Public Use
  Company Number: BR-ABBVIE-17P-020-1828661-00

PATIENT
  Sex: Female
  Weight: 63 kg

DRUGS (6)
  1. DEPAKOTE [Suspect]
     Active Substance: DIVALPROEX SODIUM
     Indication: CLUSTER HEADACHE
     Dosage: 1000 MG (MORNING/ NIGHT)
     Route: 048
     Dates: start: 201611
  2. DIAZEPAM. [Concomitant]
     Active Substance: DIAZEPAM
     Route: 048
     Dates: start: 201610
  3. DIAZEPAM. [Concomitant]
     Active Substance: DIAZEPAM
     Indication: SLEEP DISORDER THERAPY
     Route: 048
  4. CICLOFEMME [Concomitant]
     Indication: CONTRACEPTION
     Dosage: FORM STRENGTH: 0.15 MG / 0.03 MG; DAILY DOSE: 1 TABLET (AT NIGHT)
     Route: 048
     Dates: start: 2008
  5. LOSARTAN POTASSIUM. [Concomitant]
     Active Substance: LOSARTAN POTASSIUM
     Indication: HYPERTENSION
     Dosage: 50 MG (IN THE MORNING), NOT REGULARLY
     Route: 048
  6. OXYGEN. [Concomitant]
     Active Substance: OXYGEN
     Indication: HEADACHE
     Dates: start: 201611

REACTIONS (6)
  - Nephrolithiasis [Unknown]
  - Vitamin D decreased [Unknown]
  - Swelling [Not Recovered/Not Resolved]
  - Product use issue [Unknown]
  - Infection [Not Recovered/Not Resolved]
  - Off label use [Unknown]

NARRATIVE: CASE EVENT DATE: 2016
